FAERS Safety Report 9997785 (Version 1)
Quarter: 2014Q1

REPORT INFORMATION
  Report Type: Spontaneous
  Country: US (occurrence: US)
  Receive Date: 20140311
  Receipt Date: 20140311
  Transmission Date: 20141002
  Serious: No
  Sender: FDA-Public Use
  Company Number: US-PFIZER INC-2014065519

PATIENT
  Age: 53 Year
  Sex: Female
  Weight: 54.42 kg

DRUGS (1)
  1. ADVIL [Suspect]
     Indication: MUSCULOSKELETAL PAIN
     Dosage: 400 MG, ONCE
     Route: 048
     Dates: start: 20140226, end: 20140226

REACTIONS (4)
  - Foreign body [Unknown]
  - Oropharyngeal pain [Unknown]
  - Dyspepsia [Unknown]
  - Irritability [Unknown]
